FAERS Safety Report 4653296-5 (Version None)
Quarter: 2005Q2

REPORT INFORMATION
  Report Type: 
  Country: None (occurrence: None)
  Receive Date: 20050503
  Receipt Date: 20050503
  Transmission Date: 20051028
  Serious: Yes (Hospitalization)
  Sender: FDA-Public Use
  Company Number: None

PATIENT
  Age: 57 Year
  Sex: Male
  Weight: 95.8 kg

DRUGS (8)
  1. TARCEVA [Suspect]
     Indication: NON-SMALL CELL LUNG CANCER METASTATIC
     Dosage: 150 MG PO Q DAY
     Route: 048
     Dates: start: 20050403, end: 20050413
  2. VALSARTAN [Concomitant]
  3. PRAVASTATIN [Concomitant]
  4. EZETIMIBE [Concomitant]
  5. ACYCLOVIR [Concomitant]
  6. FOLIC ACID [Concomitant]
  7. LORATADINE [Concomitant]
  8. HYDROCODONE/ACETAMINOPHEN [Concomitant]

REACTIONS (3)
  - GASTROINTESTINAL HAEMORRHAGE [None]
  - HAEMOPTYSIS [None]
  - THROMBOCYTOPENIA [None]
